FAERS Safety Report 17425906 (Version 4)
Quarter: 2020Q1

REPORT INFORMATION
  Report Type: Spontaneous
  Country: NL (occurrence: NL)
  Receive Date: 20200217
  Receipt Date: 20200309
  Transmission Date: 20200409
  Serious: Yes (Hospitalization)
  Sender: FDA-Public Use
  Company Number: NL-PFIZER INC-2015254272

PATIENT
  Age: 73 Year
  Sex: Male

DRUGS (19)
  1. SOMAVERT [Suspect]
     Active Substance: PEGVISOMANT
     Dosage: 40 MG, WEEKLY (1X/WEEK)
     Route: 058
     Dates: start: 20120704
  2. SOMAVERT [Suspect]
     Active Substance: PEGVISOMANT
     Dosage: 40 MG, WEEKLY (1X/WEEK)
     Route: 058
     Dates: start: 20110215, end: 20160324
  3. SOMAVERT [Suspect]
     Active Substance: PEGVISOMANT
     Dosage: 30 MG, 2X/WEEK
     Route: 058
     Dates: start: 20160325, end: 20160920
  4. TICAGRELOR. [Concomitant]
     Active Substance: TICAGRELOR
     Dosage: 90 MG, 2X/DAY
     Route: 048
  5. ACETYLSALICYLZUUR [Concomitant]
     Active Substance: ASPIRIN
     Dosage: 80 MG, 1X/DAY
     Route: 048
  6. SOMAVERT [Suspect]
     Active Substance: PEGVISOMANT
     Dosage: 30 MG, 2X/WEEK
     Dates: start: 201901
  7. SOMAVERT [Suspect]
     Active Substance: PEGVISOMANT
     Dosage: 30 MG, 2X/WEEK
     Dates: start: 20200130
  8. ATORVASTATIN [Concomitant]
     Active Substance: ATORVASTATIN
     Dosage: 10 MG, 1X/DAY
     Route: 048
  9. TEMAZEPAM. [Concomitant]
     Active Substance: TEMAZEPAM
     Dosage: 10 MG, AS NEEDED 1X/DAY
     Route: 048
  10. SOMAVERT [Suspect]
     Active Substance: PEGVISOMANT
     Dosage: 30 MG, 3X/WEEK
     Dates: start: 20160920
  11. SOMAVERT [Suspect]
     Active Substance: PEGVISOMANT
     Dosage: 30 MG, 2X/WEEK
     Dates: start: 20190111
  12. FUROSEMIDE. [Concomitant]
     Active Substance: FUROSEMIDE
     Dosage: 40 MG, 1X/DAY
     Route: 048
  13. SOMAVERT [Suspect]
     Active Substance: PEGVISOMANT
     Indication: ACROMEGALY
     Dosage: 20 MG, WEEKLY (1X/WEEK)
     Route: 058
     Dates: start: 20100120, end: 20100316
  14. SOMAVERT [Suspect]
     Active Substance: PEGVISOMANT
     Dosage: 40 MG, WEEKLY (1X/WEEK)
     Route: 058
     Dates: start: 20100317
  15. SOMAVERT [Suspect]
     Active Substance: PEGVISOMANT
     Dosage: 30 MG, 1X/WEEK
     Dates: start: 20190828
  16. OCTREOTIDE. [Concomitant]
     Active Substance: OCTREOTIDE
     Dosage: UNK
  17. PANTOPRAZOL [PANTOPRAZOLE] [Concomitant]
     Active Substance: PANTOPRAZOLE
     Dosage: 40 MG, 1X/DAY
     Route: 048
  18. EPLERENONE. [Concomitant]
     Active Substance: EPLERENONE
     Dosage: 25 MG, ALTERNATE DAY
     Route: 048
  19. PERINDOPRIL [Concomitant]
     Active Substance: PERINDOPRIL
     Dosage: 8 MG, 1X/DAY
     Route: 048

REACTIONS (3)
  - Cerebral infarction [Recovering/Resolving]
  - Off label use [Unknown]
  - Product use issue [Unknown]

NARRATIVE: CASE EVENT DATE: 20100120
